FAERS Safety Report 8441518-4 (Version None)
Quarter: 2012Q2

REPORT INFORMATION
  Report Type: 
  Country: None (occurrence: None)
  Receive Date: 20120615
  Receipt Date: 20120612
  Transmission Date: 20120825
  Serious: Yes (Other)
  Sender: FDA-Public Use
  Company Number: US-PFIZER INC-2012107277

PATIENT
  Sex: Female
  Weight: 88 kg

DRUGS (7)
  1. COREG [Concomitant]
     Dosage: UNK
  2. COZAAR [Concomitant]
     Dosage: UNK
  3. LIPITOR [Suspect]
     Indication: HYPERLIPIDAEMIA
     Dosage: 40 MG, 1X/DAY
     Route: 048
     Dates: start: 20010101
  4. ACTOS [Concomitant]
     Dosage: UNK
  5. LIPITOR [Suspect]
     Dosage: 40 MG, 1X/DAY
     Route: 048
     Dates: start: 20060101
  6. LANTUS [Concomitant]
     Dosage: UNK
  7. LIPITOR [Suspect]
     Dosage: 80 MG, 1X/DAY
     Route: 048

REACTIONS (2)
  - BLOOD CHOLESTEROL ABNORMAL [None]
  - GLAUCOMA [None]
